FAERS Safety Report 4550877-4 (Version None)
Quarter: 2004Q4

REPORT INFORMATION
  Report Type: 
  Country: None (occurrence: None)
  Receive Date: 20041217
  Receipt Date: 20040817
  Transmission Date: 20050328
  Serious: No
  Sender: FDA-Public Use
  Company Number: 2004-BP-06280BP

PATIENT
  Age: 70 Year
  Sex: Male
  Weight: 93.44 kg

DRUGS (1)
  1. SPIRIVA [Suspect]
     Indication: CHRONIC OBSTRUCTIVE AIRWAYS DISEASE
     Dosage: 18 MCG (18 MCG, 1 QD), IH
     Route: 055
     Dates: start: 20040701, end: 20040711

REACTIONS (2)
  - FALL [None]
  - VERTIGO [None]
